FAERS Safety Report 5506369-9 (Version None)
Quarter: 2007Q4

REPORT INFORMATION
  Report Type: 
  Country: None (occurrence: None)
  Receive Date: 20071105
  Receipt Date: 20071025
  Transmission Date: 20080405
  Serious: Yes (Other)
  Sender: FDA-Public Use
  Company Number: ES-JNJFOC-20071004094

PATIENT
  Age: 75 Year
  Sex: Male

DRUGS (2)
  1. TAVANIC [Suspect]
     Indication: URETHRAL OPERATION
     Route: 048
  2. ENALAPRIL MALEATE [Concomitant]
     Route: 065

REACTIONS (3)
  - ANAEMIA [None]
  - MYALGIA [None]
  - SYNOVIAL RUPTURE [None]
